FAERS Safety Report 25875558 (Version 1)
Quarter: 2025Q4

REPORT INFORMATION
  Report Type: Spontaneous
  Country: US (occurrence: US)
  Receive Date: 20251003
  Receipt Date: 20251003
  Transmission Date: 20260117
  Serious: No
  Sender: CIPLA
  Company Number: US-CIPLA LTD.-2025US11929

PATIENT

DRUGS (3)
  1. ALBUTEROL [Suspect]
     Active Substance: ALBUTEROL
     Indication: Asthma
     Dosage: UNK (WHEN PATIENT WAS 14 YEARS OLD) (ONLY WHILE WORKING OUT SOMETIMES 2 TIMES A DAY OR SOMETIMES ZER
  2. ALBUTEROL [Suspect]
     Active Substance: ALBUTEROL
     Dosage: UNK (ONLY WHILE WORKING OUT SOMETIMES 2 TIMES A DAY OR SOMETIMES ZERO VIA MOUTH)
  3. ALBUTEROL [Suspect]
     Active Substance: ALBUTEROL
     Dosage: UNK (ONLY WHILE WORKING OUT SOMETIMES 2 TIMES A DAY OR SOMETIMES ZERO VIA MOUTH)
     Dates: start: 20250903

REACTIONS (2)
  - Drug dose omission by device [Unknown]
  - Product packaging quantity issue [Unknown]

NARRATIVE: CASE EVENT DATE: 20250910
